FAERS Safety Report 22331492 (Version 3)
Quarter: 2023Q2

REPORT INFORMATION
  Report Type: Spontaneous
  Country: US (occurrence: US)
  Receive Date: 20230517
  Receipt Date: 20230629
  Transmission Date: 20230722
  Serious: No
  Sender: FDA-Public Use
  Company Number: US-PHARMING-PHAUS2023000374

PATIENT

DRUGS (5)
  1. RUCONEST [Suspect]
     Active Substance: HUMAN C1-ESTERASE INHIBITOR
     Indication: Hereditary angioedema
     Dosage: 4200 IU, TWICE WEEKLY
     Route: 042
     Dates: start: 20220914
  2. RUCONEST [Suspect]
     Active Substance: HUMAN C1-ESTERASE INHIBITOR
     Dosage: 4200 IU, TWICE WEEKLY
     Route: 042
     Dates: start: 20220915
  3. RUCONEST [Suspect]
     Active Substance: HUMAN C1-ESTERASE INHIBITOR
     Dosage: 4200 IU, TWICE WEEKLY
     Route: 042
     Dates: start: 20220915
  4. ICATIBANT [Concomitant]
     Active Substance: ICATIBANT ACETATE
     Indication: Hereditary angioedema
     Dosage: UNK, PRN
  5. EPIPEN [Concomitant]
     Active Substance: EPINEPHRINE
     Indication: Hereditary angioedema

REACTIONS (5)
  - Electric shock [Unknown]
  - Weight increased [Unknown]
  - Condition aggravated [Unknown]
  - Skin atrophy [Unknown]
  - Intentional product use issue [Unknown]
